FAERS Safety Report 7151731-4 (Version None)
Quarter: 2010Q4

REPORT INFORMATION
  Report Type: 
  Country: None (occurrence: None)
  Receive Date: 20101210
  Receipt Date: 20101209
  Transmission Date: 20110411
  Serious: Yes (Hospitalization)
  Sender: FDA-Public Use
  Company Number: PHHO2010GB18597

PATIENT
  Sex: Female

DRUGS (2)
  1. CGS 20267 T30748+TAB [Suspect]
     Indication: BREAST CANCER
     Dosage: 2.5 MG, QD
     Dates: start: 20071205
  2. ASPIRIN [Suspect]

REACTIONS (2)
  - ABDOMINAL PAIN [None]
  - GASTRIC ULCER PERFORATION [None]
